FAERS Safety Report 19821302 (Version 1)
Quarter: 2021Q3

REPORT INFORMATION
  Report Type: Spontaneous
  Country: JP (occurrence: JP)
  Receive Date: 20210913
  Receipt Date: 20210913
  Transmission Date: 20211014
  Serious: Yes (Other)
  Sender: FDA-Public Use
  Company Number: JP-RECORDATI RARE DISEASE INC.-2021003591

PATIENT

DRUGS (5)
  1. CYCLOPHOSPHAMIDE. [Suspect]
     Active Substance: CYCLOPHOSPHAMIDE
     Indication: METASTASES TO LUNG
     Dosage: UNK
     Dates: start: 201806, end: 201812
  2. DOXORUBICIN [Concomitant]
     Active Substance: DOXORUBICIN
     Dosage: 350 MILLIGRAM/SQ. METER
     Dates: start: 2018
  3. UNSPECIFIED DACTINOMYCIN [Suspect]
     Active Substance: DACTINOMYCIN
     Indication: EWING-LIKE SARCOMA
     Dosage: UNK
     Dates: start: 201809, end: 201812
  4. VINCRISTINE [Suspect]
     Active Substance: VINCRISTINE
     Indication: METASTASES TO LUNG
     Dosage: UNK
     Dates: start: 201806, end: 201812
  5. DOXORUBICIN [Concomitant]
     Active Substance: DOXORUBICIN
     Indication: METASTASES TO LUNG
     Dosage: UNK
     Dates: start: 201806, end: 2018

REACTIONS (2)
  - Arthritis bacterial [Unknown]
  - Febrile neutropenia [Unknown]
